FAERS Safety Report 5338633-0 (Version None)
Quarter: 2007Q2

REPORT INFORMATION
  Report Type: 
  Country: None (occurrence: None)
  Receive Date: 20070322
  Receipt Date: 20060814
  Transmission Date: 20071010
  Serious: Yes (Other)
  Sender: FDA-Public Use
  Company Number: 200612734BCC

PATIENT
  Sex: Female
  Weight: 63.5036 kg

DRUGS (3)
  1. ALEVE [Suspect]
     Indication: ARTHRITIS
     Dosage: 220-440 MG, IRR, ORAL
     Route: 048
     Dates: start: 20040101
  2. TENORMIN [Concomitant]
  3. DARVOCET [Concomitant]

REACTIONS (1)
  - GASTRIC MUCOSAL LESION [None]
